FAERS Safety Report 9227905 (Version 1)
Quarter: 2013Q2

REPORT INFORMATION
  Report Type: Spontaneous
  Country: US (occurrence: None)
  Receive Date: 20130411
  Receipt Date: 20130411
  Transmission Date: 20140414
  Serious: Yes (Disabling)
  Sender: FDA-Public Use
  Company Number: None

PATIENT
  Age: 40 Year
  Sex: Male
  Weight: 108.86 kg

DRUGS (2)
  1. FINASTERIDE [Suspect]
     Indication: ALOPECIA
     Dosage: ONCE DAILY
     Route: 048
     Dates: start: 20110101, end: 20121201
  2. FINASTERIDE [Suspect]
     Indication: PROSTATIC DISORDER
     Dosage: ONCE DAILY
     Route: 048
     Dates: start: 20110101, end: 20121201

REACTIONS (10)
  - Penile size reduced [None]
  - Depression [None]
  - Anxiety [None]
  - Fatigue [None]
  - Fear [None]
  - Anger [None]
  - Arthralgia [None]
  - Apathy [None]
  - Unemployment [None]
  - Muscle atrophy [None]
